FAERS Safety Report 5941479-3 (Version None)
Quarter: 2008Q4

REPORT INFORMATION
  Report Type: 
  Country: None (occurrence: None)
  Receive Date: 20081103
  Receipt Date: 20081103
  Transmission Date: 20090506
  Serious: Yes (Other)
  Sender: FDA-Public Use
  Company Number: None

PATIENT
  Age: 4 Month
  Sex: Male
  Weight: 6.3504 kg

DRUGS (1)
  1. MIRALAX [Suspect]
     Indication: ANAL ATRESIA
     Dosage: 1/4 ADULT DOSE ONCE / DAY PO
     Route: 048
     Dates: start: 20060407, end: 20080901

REACTIONS (7)
  - EXCESSIVE EYE BLINKING [None]
  - FRACTURED COCCYX [None]
  - HEAD TITUBATION [None]
  - MOTOR DYSFUNCTION [None]
  - NERVOUS SYSTEM DISORDER [None]
  - SENSORY DISTURBANCE [None]
  - SPEECH DISORDER [None]
